FAERS Safety Report 5162445-4 (Version None)
Quarter: 2006Q4

REPORT INFORMATION
  Report Type: 
  Country: None (occurrence: None)
  Receive Date: 20061129
  Receipt Date: 20061129
  Transmission Date: 20070319
  Serious: Yes (Hospitalization)
  Sender: FDA-Public Use
  Company Number: None

PATIENT
  Age: 66 Year
  Sex: Female

DRUGS (10)
  1. AMBIEN [Suspect]
     Indication: SOMNOLENCE
     Dosage: 10MG ONCE PO
     Route: 048
     Dates: start: 20060802, end: 20060802
  2. HYDROCODONE/ACETAMIN 5/500 [Suspect]
     Indication: PAIN
     Dosage: 5/500 Q6HPRN PO
     Route: 048
     Dates: start: 20060727, end: 20060802
  3. HYDROCODONE/ACETAMIN 5/500 [Suspect]
     Indication: POST PROCEDURAL COMPLICATION
     Dosage: 5/500 Q6HPRN PO
     Route: 048
     Dates: start: 20060727, end: 20060802
  4. LESCOL [Concomitant]
  5. CYCLOBENZAPRINE HCL [Concomitant]
  6. ACETAMINOPHEN [Concomitant]
  7. IRON [Concomitant]
  8. LEVOXYL [Concomitant]
  9. CYMBALTA [Concomitant]
  10. FOSAMAX [Concomitant]

REACTIONS (6)
  - AGITATION [None]
  - CONFUSIONAL STATE [None]
  - HALLUCINATION [None]
  - LOGORRHOEA [None]
  - MENTAL STATUS CHANGES [None]
  - SPEECH DISORDER [None]
